FAERS Safety Report 15693631 (Version 3)
Quarter: 2019Q2

REPORT INFORMATION
  Report Type: Spontaneous
  Country: BR (occurrence: BR)
  Receive Date: 20181206
  Receipt Date: 20190625
  Transmission Date: 20190711
  Serious: Yes (Life-Threatening, Hospitalization, Other)
  Sender: FDA-Public Use
  Company Number: BR-EMD SERONO-230280K09BRA

PATIENT
  Age: 43 Year
  Sex: Female

DRUGS (3)
  1. REBIF [Suspect]
     Active Substance: INTERFERON BETA-1A
     Indication: RELAPSING-REMITTING MULTIPLE SCLEROSIS
     Route: 058
     Dates: start: 20051216, end: 2009
  2. REBIF [Suspect]
     Active Substance: INTERFERON BETA-1A
     Dates: start: 2009
  3. AMLODIPINE [Suspect]
     Active Substance: AMLODIPINE BESYLATE
     Indication: BLOOD PRESSURE MEASUREMENT

REACTIONS (7)
  - Swelling [Unknown]
  - Epistaxis [Recovered/Resolved]
  - Surgery [Recovered/Resolved]
  - Arterial rupture [Unknown]
  - Blood pressure increased [Recovered/Resolved]
  - Surgical failure [Unknown]
  - Fatigue [Unknown]

NARRATIVE: CASE EVENT DATE: 2005
